FAERS Safety Report 18381931 (Version 1)
Quarter: 2020Q4

REPORT INFORMATION
  Report Type: Spontaneous
  Country: US (occurrence: US)
  Receive Date: 20201014
  Receipt Date: 20201014
  Transmission Date: 20210114
  Serious: No
  Sender: FDA-Public Use
  Company Number: US-GLAXOSMITHKLINE-US2020200019

PATIENT
  Age: 27 Year
  Sex: Male

DRUGS (1)
  1. FLUTICASONE PROPIONATE+SALMETEROL XINAFOATE [Suspect]
     Active Substance: FLUTICASONE PROPIONATE\SALMETEROL XINAFOATE
     Indication: CHEST DISCOMFORT
     Dosage: 1 PUFF(S), 1D
     Route: 055

REACTIONS (4)
  - Pruritus [Unknown]
  - Sneezing [Unknown]
  - Feeling hot [Unknown]
  - Palpitations [Unknown]

NARRATIVE: CASE EVENT DATE: 20201005
